FAERS Safety Report 5187496-5 (Version None)
Quarter: 2006Q4

REPORT INFORMATION
  Report Type: 
  Country: None (occurrence: None)
  Receive Date: 20061220
  Receipt Date: 20060405
  Transmission Date: 20070319
  Serious: No
  Sender: FDA-Public Use
  Company Number: US-AMGEN-US175143

PATIENT
  Sex: Female

DRUGS (2)
  1. ENBREL [Suspect]
     Indication: PSORIASIS
  2. UNSPECIFIED ALLERGY MEDICATION [Concomitant]

REACTIONS (1)
  - DRUG HYPERSENSITIVITY [None]
